FAERS Safety Report 8334624-6 (Version None)
Quarter: 2012Q2

REPORT INFORMATION
  Report Type: 
  Country: None (occurrence: None)
  Receive Date: 20120503
  Receipt Date: 20120502
  Transmission Date: 20120825
  Serious: Yes (Life-Threatening, Hospitalization)
  Sender: FDA-Public Use
  Company Number: US-ROXANE LABORATORIES, INC.-2012-RO-00887RO

PATIENT
  Age: 56 Year
  Sex: Female
  Weight: 81 kg

DRUGS (36)
  1. PREDNISONE TAB [Suspect]
     Dosage: 20 MG
     Route: 048
     Dates: start: 20111019, end: 20111025
  2. PREDNISONE TAB [Suspect]
     Dosage: 2 MG
     Route: 048
     Dates: start: 20111215, end: 20111221
  3. KETOROLAC TROMETHAMINE [Concomitant]
     Indication: UVEITIS
     Route: 061
     Dates: start: 20081015
  4. PREDNISONE TAB [Suspect]
     Dosage: 50 MG
     Route: 048
     Dates: start: 20110928, end: 20111004
  5. HUMIRA [Suspect]
     Indication: UVEITIS
     Route: 058
     Dates: start: 20110914, end: 20120208
  6. HUMIRA [Suspect]
     Route: 058
     Dates: start: 20120229
  7. GABAPENTIN [Concomitant]
     Indication: ARTHRALGIA
     Dates: start: 20100101
  8. MYCOPHENOLATE MOFETIL [Concomitant]
     Dates: start: 20080101
  9. ROSUVASTATIN CALCIUM [Concomitant]
     Indication: BLOOD CHOLESTEROL
     Dates: start: 20100101
  10. FOLIC ACID [Concomitant]
     Indication: VITAMIN SUPPLEMENTATION
     Dates: start: 20040101
  11. FUROSEMIDE [Concomitant]
     Indication: DIURETIC THERAPY
     Dates: start: 20050101
  12. FUROSEMIDE [Concomitant]
     Indication: BLOOD PRESSURE
  13. PREDNISONE TAB [Suspect]
     Dosage: 4 MG
     Route: 048
     Dates: start: 20111201, end: 20111207
  14. PREDNISONE TAB [Suspect]
     Dosage: 3 MG
     Route: 048
     Dates: start: 20111208, end: 20111214
  15. MYCOPHENOLATE MOFETIL [Concomitant]
     Indication: UVEITIS
     Dosage: 2000 MG
     Route: 048
     Dates: start: 20101024
  16. LORATADINE [Concomitant]
     Indication: HYPERSENSITIVITY
     Dates: start: 20030101
  17. LORAZEPAM [Concomitant]
     Indication: ANXIETY
     Dates: start: 20111013
  18. PREDNISONE TAB [Suspect]
     Dosage: 12.5 MG
     Route: 048
     Dates: start: 20111102, end: 20111108
  19. BUPROPION HYDROCHLORIDE [Concomitant]
     Indication: DEPRESSION
     Dates: start: 20030101
  20. PREDNISONE TAB [Suspect]
     Indication: UVEITIS
     Dosage: 60 MG
     Route: 048
     Dates: start: 20110914, end: 20110927
  21. PREDNISONE TAB [Suspect]
     Dosage: 40 MG
     Route: 048
     Dates: start: 20111005, end: 20111011
  22. PREDNISONE TAB [Suspect]
     Dosage: 30 MG
     Route: 048
     Dates: start: 20111012, end: 20111018
  23. LISINOPRIL [Concomitant]
     Indication: BLOOD PRESSURE
     Dates: start: 20030101
  24. PROMETHAZINE [Concomitant]
     Indication: NAUSEA
     Dates: start: 20090101
  25. CEFIXIME [Concomitant]
     Indication: BACK PAIN
     Dates: start: 20040101
  26. DICLOFENAC SODIUM [Concomitant]
     Indication: ARTHRALGIA
     Dosage: 2 MG
     Dates: start: 20100101
  27. ESTRADIOL [Concomitant]
     Indication: OESTROGEN REPLACEMENT THERAPY
     Dates: start: 20090101
  28. SERTRALINE HYDROCHLORIDE [Concomitant]
     Indication: DEPRESSION
     Dates: start: 20080101
  29. PREDNISONE TAB [Suspect]
     Dosage: 1 MG
     Route: 048
     Dates: start: 20111222, end: 20111228
  30. VICODIN [Concomitant]
     Indication: HEADACHE
     Dates: start: 20111020
  31. PREDNISONE TAB [Suspect]
     Dosage: 15 NR
     Route: 048
     Dates: start: 20111026, end: 20111101
  32. PREDNISONE TAB [Suspect]
     Dosage: 10 MG
     Route: 048
     Dates: start: 20111109, end: 20111116
  33. PREDNISONE TAB [Suspect]
     Dosage: 7.5 MG
     Route: 048
     Dates: start: 20111117, end: 20111123
  34. PREDNISONE TAB [Suspect]
     Dosage: 5 MG
     Route: 048
     Dates: start: 20111124, end: 20111130
  35. CALCIUM WITH D [Concomitant]
     Indication: MINERAL SUPPLEMENTATION
     Dates: start: 20050101
  36. TRAMADOL HCL [Concomitant]
     Indication: ARTHRALGIA
     Dates: start: 20060101

REACTIONS (1)
  - GASTROENTERITIS VIRAL [None]
